FAERS Safety Report 9818094 (Version 3)
Quarter: 2014Q1

REPORT INFORMATION
  Report Type: Report from Study
  Country: JP (occurrence: JP)
  Receive Date: 20140115
  Receipt Date: 20140123
  Transmission Date: 20141002
  Serious: Yes (Hospitalization)
  Sender: FDA-Public Use
  Company Number: PHHY2014JP003729

PATIENT
  Age: 42 Year
  Sex: Female

DRUGS (10)
  1. LEPONEX / CLOZARIL [Suspect]
     Indication: SCHIZOPHRENIA
     Dosage: 12.5 MG, DAILY
     Route: 048
     Dates: start: 20130401
  2. LEPONEX / CLOZARIL [Suspect]
     Dosage: 75 MG, DAILY
     Route: 048
     Dates: start: 20130411
  3. LEPONEX / CLOZARIL [Suspect]
     Dosage: 100 MG, DAILY
     Route: 048
     Dates: start: 20130418
  4. LEPONEX / CLOZARIL [Suspect]
     Dosage: 175 MG, DAILY
     Route: 048
     Dates: start: 20130425
  5. LEPONEX / CLOZARIL [Suspect]
     Dosage: 200 MG, DAILY
     Route: 048
     Dates: start: 20130502
  6. LEPONEX / CLOZARIL [Suspect]
     Dosage: 250 MG, DAILY
     Route: 048
     Dates: start: 20130509
  7. LEPONEX / CLOZARIL [Suspect]
     Dosage: 300 MG, DAILY
     Route: 048
     Dates: start: 20130516, end: 20130613
  8. LEPONEX / CLOZARIL [Suspect]
     Dosage: 325 MG, DAILY
     Route: 048
     Dates: start: 20130620, end: 20140109
  9. LEPONEX / CLOZARIL [Suspect]
     Dosage: 200 MG (100 MG IN THE MORNING AND 100 MG IN TH EVENING)
     Route: 048
     Dates: start: 20140110
  10. LEPONEX / CLOZARIL [Suspect]
     Dosage: 100 MG (IN THE EVNEING)
     Route: 048
     Dates: start: 20140111

REACTIONS (1)
  - Appendicitis [Unknown]
